FAERS Safety Report 18380514 (Version 1)
Quarter: 2020Q4

REPORT INFORMATION
  Report Type: Spontaneous
  Country: ES (occurrence: ES)
  Receive Date: 20201014
  Receipt Date: 20201014
  Transmission Date: 20210114
  Serious: Yes (Life-Threatening, Other)
  Sender: FDA-Public Use
  Company Number: ES-ACCORD-204929

PATIENT
  Age: 69 Year
  Sex: Male
  Weight: 90 kg

DRUGS (5)
  1. OMEPRAZOLE. [Concomitant]
     Active Substance: OMEPRAZOLE
     Dosage: STRENGTH: 20 MG 28 CAPSULES
  2. ENALAPRIL [Concomitant]
     Active Substance: ENALAPRIL
     Dosage: STRENGTH: 20 MG 30 TABLETS
  3. AMLODIPINE [Concomitant]
     Active Substance: AMLODIPINE BESYLATE
     Dosage: STRENGTH: 10 MG
  4. DOCETAXEL. [Suspect]
     Active Substance: DOCETAXEL
     Indication: LUNG ADENOCARCINOMA
     Dosage: 140 MG EVERY 21 D (70 MG / M2), DOCETAXEL (7394A)
     Route: 041
     Dates: start: 20200611, end: 20200611
  5. ORIFIDAL [Concomitant]
     Dosage: STRENGTH: 1 MG TABLETS, 25 TABLETS

REACTIONS (3)
  - Tachypnoea [Recovered/Resolved]
  - Erythema [Recovered/Resolved]
  - Dizziness [Recovered/Resolved]

NARRATIVE: CASE EVENT DATE: 20200612
